FAERS Safety Report 20248839 (Version 3)
Quarter: 2022Q4

REPORT INFORMATION
  Report Type: Spontaneous
  Country: US (occurrence: US)
  Receive Date: 20211229
  Receipt Date: 20221123
  Transmission Date: 20230113
  Serious: Yes (Other)
  Sender: FDA-Public Use
  Company Number: US-SA-SAC20211225000411

PATIENT
  Sex: Male

DRUGS (2)
  1. CEREZYME [Suspect]
     Active Substance: IMIGLUCERASE
     Indication: Gaucher^s disease
     Dosage: 5600 IU, QOW
     Route: 042
     Dates: start: 20161004
  2. CEREZYME [Suspect]
     Active Substance: IMIGLUCERASE
     Dosage: 5600 IU, QOW
     Route: 042
     Dates: start: 20161101

REACTIONS (8)
  - Arthritis [Unknown]
  - Hypertension [Unknown]
  - Intervertebral disc protrusion [Unknown]
  - Muscular weakness [Unknown]
  - Pain [Unknown]
  - Gaucher^s disease [Unknown]
  - Condition aggravated [Unknown]
  - Bone pain [Unknown]
